FAERS Safety Report 9506668 (Version 2)
Quarter: 2013Q4

REPORT INFORMATION
  Report Type: Spontaneous
  Country: US (occurrence: US)
  Receive Date: 20130908
  Receipt Date: 20131105
  Transmission Date: 20140711
  Serious: No
  Sender: FDA-Public Use
  Company Number: US-TEVA-430696USA

PATIENT
  Age: 59 Year
  Sex: Female
  Weight: 72.64 kg

DRUGS (7)
  1. NUVIGIL [Suspect]
     Route: 048
     Dates: start: 20121219
  2. ABILIFY [Suspect]
     Dates: start: 20130522
  3. PROZAC [Concomitant]
     Indication: DEPRESSION
  4. SEROQUEL [Concomitant]
     Indication: INSOMNIA
  5. CLONAZEPAM [Concomitant]
     Indication: ANXIETY
  6. CLONAZEPAM [Concomitant]
     Indication: INSOMNIA
  7. LEVOTHYROXINE [Concomitant]

REACTIONS (4)
  - Headache [Recovered/Resolved]
  - Weight increased [Unknown]
  - Confusional state [Unknown]
  - Drug ineffective [Unknown]
